FAERS Safety Report 5572412-4 (Version None)
Quarter: 2007Q4

REPORT INFORMATION
  Report Type: 
  Country: None (occurrence: None)
  Receive Date: 20071222
  Receipt Date: 20071211
  Transmission Date: 20080405
  Serious: Yes (Other)
  Sender: FDA-Public Use
  Company Number: US-PFIZER INC-2007106131

PATIENT
  Sex: Female
  Weight: 62.3 kg

DRUGS (1)
  1. CHANTIX [Suspect]
     Indication: SMOKING CESSATION THERAPY

REACTIONS (4)
  - ABASIA [None]
  - BACK PAIN [None]
  - MUSCLE SPASMS [None]
  - NERVOUSNESS [None]
